FAERS Safety Report 7699187-7 (Version None)
Quarter: 2011Q3

REPORT INFORMATION
  Report Type: 
  Country: None (occurrence: None)
  Receive Date: 20110819
  Receipt Date: 20110804
  Transmission Date: 20111222
  Serious: No
  Sender: FDA-Public Use
  Company Number: US-BAYER-2011-062464

PATIENT
  Age: 44 Year
  Sex: Female

DRUGS (4)
  1. BETASERON [Suspect]
     Indication: RELAPSING-REMITTING MULTIPLE SCLEROSIS
     Dosage: 2 MIU, QOD
     Route: 058
     Dates: start: 20110704
  2. BETASERON [Suspect]
     Dosage: 6 MIU, QOD
     Route: 058
  3. BETASERON [Suspect]
     Dosage: 8 MIU, QOD
     Route: 058
  4. IBUPROFEN [Concomitant]
     Indication: PREMEDICATION
     Dosage: 800 MG, UNK

REACTIONS (4)
  - FATIGUE [None]
  - ORAL CANDIDIASIS [None]
  - INFLUENZA LIKE ILLNESS [None]
  - PAIN [None]
